FAERS Safety Report 6977213-8 (Version None)
Quarter: 2010Q3

REPORT INFORMATION
  Report Type: 
  Country: None (occurrence: None)
  Receive Date: 20100910
  Receipt Date: 20100831
  Transmission Date: 20110219
  Serious: Yes (Other)
  Sender: FDA-Public Use
  Company Number: BR-PFIZER INC-2010078803

PATIENT
  Age: 41 Year
  Sex: Female
  Weight: 56 kg

DRUGS (5)
  1. CHAMPIX [Suspect]
     Indication: TOBACCO USER
     Dosage: UNK
     Route: 048
     Dates: start: 20100531, end: 20100101
  2. CHAMPIX [Suspect]
     Dosage: 1 MG, 2X/DAY
     Route: 048
     Dates: start: 20100601, end: 20100801
  3. FRONTAL [Concomitant]
     Indication: ANXIETY
     Dosage: 1 MG, UNK ONCE OR TWICE DAILY
     Route: 048
  4. BUPROPION [Concomitant]
     Indication: DEPRESSION
     Dosage: UNK
  5. CARBAMAZEPINE [Concomitant]
     Dosage: 250 MG, 1X/DAY

REACTIONS (1)
  - BIPOLAR DISORDER [None]
